FAERS Safety Report 7552386-7 (Version None)
Quarter: 2011Q2

REPORT INFORMATION
  Report Type: 
  Country: None (occurrence: None)
  Receive Date: 20110616
  Receipt Date: 20090130
  Transmission Date: 20111010
  Serious: Yes (Other)
  Sender: FDA-Public Use
  Company Number: PHHO2007MX12538

PATIENT
  Age: 36 Year
  Sex: Male

DRUGS (1)
  1. DIOVAN HCT [Suspect]
     Indication: HYPERTENSION
     Dosage: 80MG/12.5MG DAILY
     Route: 048
     Dates: start: 20061201, end: 20070601

REACTIONS (1)
  - TREMOR [None]
